FAERS Safety Report 8720484 (Version 2)
Quarter: 2014Q3

REPORT INFORMATION
  Report Type: Spontaneous
  Country: US (occurrence: US)
  Receive Date: 20120813
  Receipt Date: 20140918
  Transmission Date: 20150326
  Serious: Yes (Other)
  Sender: FDA-Public Use
  Company Number: US-ROCHE-1097410

PATIENT
  Age: 80 Year
  Sex: Male

DRUGS (1)
  1. RITUXIMAB [Suspect]
     Active Substance: RITUXIMAB
     Indication: ENCEPHALITIS
     Route: 065

REACTIONS (1)
  - Mania [Recovered/Resolved]
